FAERS Safety Report 15340955 (Version 5)
Quarter: 2018Q4

REPORT INFORMATION
  Report Type: Report from Study
  Country: US (occurrence: US)
  Receive Date: 20180831
  Receipt Date: 20181127
  Transmission Date: 20190204
  Serious: No
  Sender: FDA-Public Use
  Company Number: US-SA-2018SA242407

PATIENT
  Age: 65 Year
  Sex: Female

DRUGS (2)
  1. ALIROCUMAB PREFILLED PEN [Suspect]
     Active Substance: ALIROCUMAB
     Indication: BLOOD CHOLESTEROL INCREASED
     Dosage: UNK UNK, QOW
     Route: 058
     Dates: start: 20180827, end: 201808
  2. ALIROCUMAB [Suspect]
     Active Substance: ALIROCUMAB
     Indication: BLOOD CHOLESTEROL INCREASED
     Dosage: 75 MG, QOW
     Route: 058
     Dates: start: 20180827

REACTIONS (7)
  - Wrong technique in product usage process [Unknown]
  - Constipation [Recovering/Resolving]
  - Cough [Unknown]
  - Device issue [Unknown]
  - Product dose omission [Unknown]
  - Product dose omission [Unknown]
  - Blood urea increased [Unknown]

NARRATIVE: CASE EVENT DATE: 2018
